FAERS Safety Report 16644134 (Version 1)
Quarter: 2019Q3

REPORT INFORMATION
  Report Type: Spontaneous
  Country: DE (occurrence: DE)
  Receive Date: 20190729
  Receipt Date: 20190729
  Transmission Date: 20191004
  Serious: Yes (Other)
  Sender: FDA-Public Use
  Company Number: DE-PROVELL PHARMACEUTICALS-2071443

PATIENT
  Sex: Female
  Weight: 60 kg

DRUGS (2)
  1. EUTHYROX [Suspect]
     Active Substance: LEVOTHYROXINE SODIUM
     Indication: PRODUCT USED FOR UNKNOWN INDICATION
  2. ASPIRIN PROTECT [Suspect]
     Active Substance: ASPIRIN

REACTIONS (4)
  - Hypotension [None]
  - Intracranial pressure increased [None]
  - Vomiting [None]
  - Nausea [None]
